FAERS Safety Report 23927793 (Version 1)
Quarter: 2024Q2

REPORT INFORMATION
  Report Type: Spontaneous
  Country: PL (occurrence: PL)
  Receive Date: 20240531
  Receipt Date: 20240531
  Transmission Date: 20240717
  Serious: Yes (Other)
  Sender: FDA-Public Use
  Company Number: None

PATIENT
  Age: 2 Year
  Sex: Female
  Weight: 15 kg

DRUGS (1)
  1. OSELTAMIVIR PHOSPHATE [Suspect]
     Active Substance: OSELTAMIVIR PHOSPHATE
     Indication: Influenza
     Route: 048
     Dates: start: 20190224, end: 20190225

REACTIONS (10)
  - Altered state of consciousness [Recovered/Resolved]
  - Agitation [Recovered/Resolved]
  - Restlessness [Recovered/Resolved]
  - Rash pruritic [Recovered/Resolved]
  - Cough [Recovered/Resolved]
  - Localised oedema [Recovered/Resolved]
  - Delirium [Recovered/Resolved]
  - Pain in extremity [Recovered/Resolved]
  - Headache [Recovered/Resolved]
  - Insomnia [Recovered/Resolved]

NARRATIVE: CASE EVENT DATE: 20190224
